FAERS Safety Report 4320174-0 (Version None)
Quarter: 2004Q1

REPORT INFORMATION
  Report Type: 
  Country: None (occurrence: None)
  Receive Date: 20040317
  Receipt Date: 20040304
  Transmission Date: 20041129
  Serious: Yes (Life-Threatening, Hospitalization)
  Sender: FDA-Public Use
  Company Number: 2003120706

PATIENT
  Age: 52 Year
  Sex: Female
  Weight: 116 kg

DRUGS (3)
  1. ZOLOFT [Suspect]
     Indication: DEPRESSION
     Dosage: 200 MG, DAILY, ORAL
     Route: 048
     Dates: start: 19970401, end: 20030827
  2. LEVOTHYROXINE SODIUM [Concomitant]
  3. LIOTHYRONINE SODIUM [Concomitant]

REACTIONS (14)
  - AGGRESSION [None]
  - AGITATION [None]
  - BLOOD SODIUM DECREASED [None]
  - CONFUSIONAL STATE [None]
  - DEPERSONALISATION [None]
  - DIZZINESS [None]
  - FATIGUE [None]
  - HALLUCINATION [None]
  - MANIA [None]
  - MENTAL DISORDER [None]
  - POLYDIPSIA [None]
  - PSYCHOTIC DISORDER [None]
  - THINKING ABNORMAL [None]
  - THIRST [None]
